FAERS Safety Report 22301812 (Version 3)
Quarter: 2025Q2

REPORT INFORMATION
  Report Type: Report from Study
  Country: US (occurrence: US)
  Receive Date: 20230510
  Receipt Date: 20250410
  Transmission Date: 20250717
  Serious: Yes (Other)
  Sender: TAKEDA
  Company Number: US-TAKEDA-US201805593

PATIENT
  Sex: Female

DRUGS (4)
  1. TEDUGLUTIDE [Suspect]
     Active Substance: TEDUGLUTIDE
     Indication: Short-bowel syndrome
     Dosage: 5 MILLIGRAM, QD
     Dates: start: 20171219, end: 20180208
  2. TEDUGLUTIDE [Suspect]
     Active Substance: TEDUGLUTIDE
     Dosage: 0.14 MILLILITER, QD
     Dates: start: 201712
  3. TEDUGLUTIDE [Suspect]
     Active Substance: TEDUGLUTIDE
     Dosage: 0.14 MILLILITER, QD
     Dates: start: 20230502
  4. TEDUGLUTIDE [Suspect]
     Active Substance: TEDUGLUTIDE
     Dosage: 0.28 MILLILITER, QD

REACTIONS (3)
  - Chronic kidney disease [Unknown]
  - Impaired gastric emptying [Unknown]
  - Weight decreased [Unknown]
